FAERS Safety Report 10052854 (Version 1)
Quarter: 2014Q2

REPORT INFORMATION
  Report Type: Spontaneous
  Country: US (occurrence: US)
  Receive Date: 20140402
  Receipt Date: 20140402
  Transmission Date: 20141212
  Serious: Yes (Other)
  Sender: FDA-Public Use
  Company Number: US-TEVA-472763USA

PATIENT
  Sex: 0

DRUGS (1)
  1. LANSOPRAZOLE [Suspect]

REACTIONS (1)
  - Coeliac disease [Unknown]
